FAERS Safety Report 7829475-2 (Version None)
Quarter: 2011Q4

REPORT INFORMATION
  Report Type: 
  Country: None (occurrence: None)
  Receive Date: 20111020
  Receipt Date: 20111014
  Transmission Date: 20120403
  Serious: Yes (Hospitalization)
  Sender: FDA-Public Use
  Company Number: DE-ROCHE-695487

PATIENT
  Age: 53 Year
  Sex: Male
  Weight: 90 kg

DRUGS (3)
  1. COPEGUS [Suspect]
     Indication: HEPATITIS C
     Dosage: PERMANENTLY DISCONTINUED
     Route: 048
     Dates: start: 20100222, end: 20100330
  2. PROTHIPENDYL [Suspect]
     Indication: PRODUCT USED FOR UNKNOWN INDICATION
     Route: 065
  3. PEGINTERFERON ALFA-2B [Suspect]
     Indication: HEPATITIS C
     Dosage: PERMANENTLY DISCONTINUED.
     Route: 058
     Dates: start: 20100222, end: 20100330

REACTIONS (2)
  - OVERDOSE [None]
  - SCHIZOPHRENIA [None]
